FAERS Safety Report 4425676-4 (Version None)
Quarter: 2004Q3

REPORT INFORMATION
  Report Type: 
  Country: None (occurrence: None)
  Receive Date: 20040719
  Receipt Date: 20040406
  Transmission Date: 20050211
  Serious: No
  Sender: FDA-Public Use
  Company Number: A03200401069

PATIENT
  Age: 66 Year
  Sex: Male
  Weight: 70.3075 kg

DRUGS (5)
  1. UROXATRAL [Suspect]
     Indication: BENIGN PROSTATIC HYPERPLASIA
     Dosage: 10 MG OD - ORAL
     Route: 048
     Dates: start: 20040305
  2. ATENOLOL [Concomitant]
  3. SIMVASTATIN [Concomitant]
  4. CELECOXIB [Concomitant]
  5. ACETYLSALICYLIC ACID [Concomitant]

REACTIONS (1)
  - HERPES SIMPLEX [None]
